FAERS Safety Report 9301862 (Version 1)
Quarter: 2013Q2

REPORT INFORMATION
  Report Type: Spontaneous
  Country: US (occurrence: US)
  Receive Date: 20130521
  Receipt Date: 20130521
  Transmission Date: 20140414
  Serious: No
  Sender: FDA-Public Use
  Company Number: US-TEVA-363501USA

PATIENT
  Age: 56 Year
  Sex: Female

DRUGS (2)
  1. FENTANYL [Suspect]
     Indication: CANCER PAIN
     Route: 062
     Dates: start: 201111
  2. ACTIQ [Concomitant]
     Indication: CANCER PAIN
     Dosage: ONCE OR TWICE A DAY, USUALLY IN THE EVENING FOR 4-10 MINUTES
     Dates: start: 2003

REACTIONS (2)
  - Vomiting [Unknown]
  - Nausea [Unknown]
